FAERS Safety Report 19764951 (Version 1)
Quarter: 2021Q3

REPORT INFORMATION
  Report Type: Spontaneous
  Country: US (occurrence: US)
  Receive Date: 20210831
  Receipt Date: 20210831
  Transmission Date: 20211014
  Serious: No
  Sender: FDA-Public Use
  Company Number: US-TEVA-2021-US-1946671

PATIENT
  Age: 80 Year
  Sex: Female

DRUGS (1)
  1. BRINZOLAMIDE TEVA [Suspect]
     Active Substance: BRINZOLAMIDE
     Dosage: 1 DROP EVERY 12 HOURS EACH EYE
     Route: 047
     Dates: start: 2021

REACTIONS (3)
  - Device delivery system issue [Unknown]
  - Device malfunction [Unknown]
  - Visual impairment [Unknown]

NARRATIVE: CASE EVENT DATE: 2021
